FAERS Safety Report 15027298 (Version 1)
Quarter: 2018Q2

REPORT INFORMATION
  Report Type: Report from Study
  Country: None (occurrence: CO)
  Receive Date: 20180619
  Receipt Date: 20180619
  Transmission Date: 20180711
  Serious: Yes (Hospitalization)
  Sender: FDA-Public Use
  Company Number: CO-ABBVIE-18K-036-2391917-00

PATIENT
  Age: 69 Year
  Sex: Male
  Weight: 66 kg

DRUGS (1)
  1. HUMIRA [Suspect]
     Active Substance: ADALIMUMAB
     Indication: PSORIASIS
     Route: 058
     Dates: start: 20160719, end: 20180516

REACTIONS (4)
  - Diarrhoea [Recovering/Resolving]
  - Abdominal pain upper [Recovering/Resolving]
  - Vomiting [Recovering/Resolving]
  - Haematoma [Recovering/Resolving]

NARRATIVE: CASE EVENT DATE: 20180609
